FAERS Safety Report 5232103-6 (Version None)
Quarter: 2007Q1

REPORT INFORMATION
  Report Type: 
  Country: None (occurrence: None)
  Receive Date: 20061201
  Receipt Date: 20060927
  Transmission Date: 20070707
  Serious: No
  Sender: FDA-Public Use
  Company Number: US200609001078

PATIENT
  Age: 40 Year
  Sex: Female
  Weight: 72.6 kg

DRUGS (3)
  1. CYMBALTA [Suspect]
     Indication: DEPRESSION
     Dosage: 20 MG, DAILY (1/D)
     Dates: start: 20060815, end: 20060820
  2. WELLBUTRIN [Concomitant]
  3. PROVIGIL [Concomitant]

REACTIONS (2)
  - INFLUENZA LIKE ILLNESS [None]
  - MUSCLE SPASMS [None]
